FAERS Safety Report 10446198 (Version 2)
Quarter: 2014Q4

REPORT INFORMATION
  Report Type: Report from Study
  Country: DE (occurrence: DE)
  Receive Date: 20140911
  Receipt Date: 20141126
  Transmission Date: 20150528
  Serious: Yes (Hospitalization)
  Sender: FDA-Public Use
  Company Number: DE-AMGEN-DEUCT2014068746

PATIENT
  Age: 69 Year
  Sex: Female
  Weight: 67 kg

DRUGS (4)
  1. DOXYCYCLINE. [Concomitant]
     Active Substance: DOXYCYCLINE
     Indication: PROPHYLAXIS
     Dosage: 100 MG, BID
     Route: 048
     Dates: start: 20140819, end: 20140904
  2. PANITUMUMAB [Suspect]
     Active Substance: PANITUMUMAB
     Indication: OVARIAN CANCER RECURRENT
     Dosage: 9 MG/KG, UNK
     Route: 042
     Dates: start: 20140820
  3. CARBOPLATIN. [Concomitant]
     Active Substance: CARBOPLATIN
     Indication: OVARIAN CANCER RECURRENT
     Dosage: 4 AUC, UNK
     Route: 042
     Dates: start: 20140820
  4. GEMCITABINE [Concomitant]
     Active Substance: GEMCITABINE\GEMCITABINE HYDROCHLORIDE
     Indication: OVARIAN CANCER RECURRENT
     Dosage: 1000 MG/M2, UNK
     Route: 042
     Dates: start: 20140820

REACTIONS (1)
  - Ileus [Recovered/Resolved]

NARRATIVE: CASE EVENT DATE: 20140904
